FAERS Safety Report 6897511-6 (Version None)
Quarter: 2010Q3

REPORT INFORMATION
  Report Type: 
  Country: None (occurrence: None)
  Receive Date: 20100802
  Receipt Date: 20070616
  Transmission Date: 20110219
  Serious: No
  Sender: FDA-Public Use
  Company Number: US-PFIZER INC-2007051190

PATIENT
  Sex: Female
  Weight: 72.6 kg

DRUGS (6)
  1. LYRICA [Suspect]
     Indication: PAIN IN EXTREMITY
     Dates: start: 20070401, end: 20070613
  2. MOBIC [Concomitant]
  3. ATENOLOL [Concomitant]
  4. AVANDIA [Concomitant]
  5. LISINOPRIL [Concomitant]
  6. ZOCOR [Concomitant]

REACTIONS (5)
  - INSOMNIA [None]
  - PAIN [None]
  - PARAESTHESIA [None]
  - TENDERNESS [None]
  - URTICARIA [None]
